FAERS Safety Report 24632265 (Version 2)
Quarter: 2024Q4

REPORT INFORMATION
  Report Type: Spontaneous
  Country: CN (occurrence: CN)
  Receive Date: 20241118
  Receipt Date: 20241122
  Transmission Date: 20250115
  Serious: Yes (Hospitalization)
  Sender: NOVARTIS
  Company Number: CN-002147023-NVSC2024CN220323

PATIENT
  Age: 38 Year
  Sex: Female
  Weight: 40 kg

DRUGS (8)
  1. CYCLOSPORINE [Suspect]
     Active Substance: CYCLOSPORINE
     Indication: Acute lymphocytic leukaemia
     Dosage: 0.06 G, BID (PUMP INJECTION)
     Route: 065
     Dates: start: 20241004, end: 20241006
  2. CYCLOSPORINE [Suspect]
     Active Substance: CYCLOSPORINE
     Dosage: 0.066 G, BID (PUMP INJECTION)
     Route: 065
     Dates: start: 20241006, end: 20241008
  3. CYCLOSPORINE [Suspect]
     Active Substance: CYCLOSPORINE
     Dosage: 0.066 G, QD (PUMP INJECTION)
     Route: 065
     Dates: start: 20241008, end: 20241008
  4. CYCLOSPORINE [Suspect]
     Active Substance: CYCLOSPORINE
     Dosage: 0.072 G, BID (PUMP INJECTION)
     Route: 065
     Dates: start: 20241008, end: 20241021
  5. CYCLOSPORINE [Suspect]
     Active Substance: CYCLOSPORINE
     Dosage: 0.036 G, BID (PUMP INJECTION)
     Route: 065
     Dates: start: 20241021, end: 20241024
  6. CYCLOSPORINE [Suspect]
     Active Substance: CYCLOSPORINE
     Dosage: 0.04 G, BID (PUMP INJECTION)
     Route: 065
     Dates: start: 20241024, end: 20241028
  7. CYCLOSPORINE [Suspect]
     Active Substance: CYCLOSPORINE
     Dosage: 0.044 G, BID (PUMP INJECTION)
     Route: 065
     Dates: start: 20241028, end: 20241101
  8. CYCLOSPORINE [Suspect]
     Active Substance: CYCLOSPORINE
     Dosage: 48.4 MG, BID (PUMP INJECTION)
     Route: 065
     Dates: start: 20241101, end: 20241104

REACTIONS (1)
  - Renal impairment [Unknown]

NARRATIVE: CASE EVENT DATE: 20241021
